FAERS Safety Report 8786001 (Version 2)
Quarter: 2012Q4

REPORT INFORMATION
  Report Type: 
  Country: BR (occurrence: BR)
  Receive Date: 20120914
  Receipt Date: 20120924
  Transmission Date: 20130627
  Serious: Yes (Death, Hospitalization)
  Sender: FDA-Public Use
  Company Number: BR-B.I. PHARMACEUTICALS,INC./RIDGEFIELD-2012-BR-01039BR

PATIENT
  Sex: Male
  Weight: 48 kg

DRUGS (4)
  1. SPIRIVA RESPIMAT [Suspect]
     Indication: CHRONIC OBSTRUCTIVE PULMONARY DISEASE
     Dosage: 5 mcg
     Route: 055
     Dates: start: 201201, end: 20120727
  2. ALENIA [Concomitant]
     Indication: CHRONIC OBSTRUCTIVE PULMONARY DISEASE
     Dates: start: 2008, end: 20120727
  3. AMINOFILINA [Concomitant]
     Indication: FATIGUE
     Dates: start: 2006, end: 20120727
  4. ACETYLSALICYLIC ACID [Concomitant]
     Dates: end: 20120727

REACTIONS (4)
  - Chronic obstructive pulmonary disease [Fatal]
  - Pneumonia [Fatal]
  - Multi-organ failure [Fatal]
  - Sepsis [Fatal]
